FAERS Safety Report 18251233 (Version 1)
Quarter: 2020Q3

REPORT INFORMATION
  Report Type: Report from Study
  Country: CA (occurrence: CA)
  Receive Date: 20200910
  Receipt Date: 20200910
  Transmission Date: 20201103
  Serious: Yes (Hospitalization)
  Sender: FDA-Public Use
  Company Number: CA-ACCORD-199831

PATIENT
  Age: 37 Year
  Sex: Female

DRUGS (14)
  1. CELEBREX [Concomitant]
     Active Substance: CELECOXIB
  2. METHOTREXATE. [Suspect]
     Active Substance: METHOTREXATE
     Indication: PRODUCT USED FOR UNKNOWN INDICATION
     Route: 058
  3. NAPROXEN. [Concomitant]
     Active Substance: NAPROXEN
  4. SIMPONI [Concomitant]
     Active Substance: GOLIMUMAB
     Dosage: SOLUTION SUBCUTANEOUS
  5. HUMIRA [Concomitant]
     Active Substance: ADALIMUMAB
     Dosage: SOLUTION SUBCUTANEOUS
     Route: 058
  6. DICLOFENAC [Concomitant]
     Active Substance: DICLOFENAC
  7. DESOXIMETASONE. [Concomitant]
     Active Substance: DESOXIMETASONE
     Route: 058
  8. ENBREL [Concomitant]
     Active Substance: ETANERCEPT
     Route: 058
  9. FLURBIPROFEN. [Concomitant]
     Active Substance: FLURBIPROFEN
  10. MORPHINE [Concomitant]
     Active Substance: MORPHINE
  11. IBUPROFEN. [Concomitant]
     Active Substance: IBUPROFEN
  12. MELOXICAM. [Concomitant]
     Active Substance: MELOXICAM
     Dosage: 2 EVERY 1 DAYS
  13. ETANERCEPT [Suspect]
     Active Substance: ETANERCEPT
     Indication: ANKYLOSING SPONDYLITIS
     Dosage: 1 EVERY 1 WEEKS
     Route: 058
  14. INFLIXIMAB [Concomitant]
     Active Substance: INFLIXIMAB
     Route: 042

REACTIONS (9)
  - Arthralgia [Not Recovered/Not Resolved]
  - Bacterial vaginosis [Not Recovered/Not Resolved]
  - Joint effusion [Not Recovered/Not Resolved]
  - Kidney infection [Not Recovered/Not Resolved]
  - Musculoskeletal stiffness [Not Recovered/Not Resolved]
  - Nausea [Not Recovered/Not Resolved]
  - Drug ineffective [Unknown]
  - Cough [Not Recovered/Not Resolved]
  - Infection [Not Recovered/Not Resolved]
